FAERS Safety Report 7460153-8 (Version None)
Quarter: 2011Q2

REPORT INFORMATION
  Report Type: 
  Country: None (occurrence: None)
  Receive Date: 20110505
  Receipt Date: 20110426
  Transmission Date: 20111010
  Serious: Yes (Hospitalization, Disabling, Other)
  Sender: FDA-Public Use
  Company Number: US-ROCHE-718969

PATIENT
  Sex: Male
  Weight: 54.4 kg

DRUGS (3)
  1. ACCUTANE [Suspect]
     Route: 065
     Dates: start: 19960401, end: 19961001
  2. ACCUTANE [Suspect]
     Route: 065
     Dates: start: 19970101
  3. ACCUTANE [Suspect]
     Indication: ACNE
     Route: 065
     Dates: start: 19940101

REACTIONS (7)
  - ANAL FISSURE [None]
  - COLONIC POLYP [None]
  - RECTAL ULCER [None]
  - GASTROINTESTINAL INJURY [None]
  - IRRITABLE BOWEL SYNDROME [None]
  - INFLAMMATORY BOWEL DISEASE [None]
  - COLITIS ULCERATIVE [None]
